FAERS Safety Report 17828081 (Version 7)
Quarter: 2022Q1

REPORT INFORMATION
  Report Type: Report from Study
  Country: US (occurrence: US)
  Receive Date: 20200527
  Receipt Date: 20220107
  Transmission Date: 20220423
  Serious: No
  Sender: FDA-Public Use
  Company Number: None

PATIENT
  Sex: Male
  Weight: 165.5 kg

DRUGS (1)
  1. ENTRESTO [Suspect]
     Active Substance: SACUBITRIL\VALSARTAN
     Indication: Cardiac failure chronic
     Dosage: 1 DF, BID (24/26 MG)
     Route: 048

REACTIONS (10)
  - Dyspnoea [Unknown]
  - Orthopnoea [Unknown]
  - Oedema peripheral [Unknown]
  - Weight increased [Unknown]
  - Decreased appetite [Unknown]
  - Feeling abnormal [Unknown]
  - Cardiac disorder [Unknown]
  - Hypotension [Unknown]
  - Dizziness [Unknown]
  - Product availability issue [Unknown]
